FAERS Safety Report 19905133 (Version 1)
Quarter: 2021Q3

REPORT INFORMATION
  Report Type: Spontaneous
  Country: US (occurrence: US)
  Receive Date: 20210930
  Receipt Date: 20210930
  Transmission Date: 20211014
  Serious: Yes (Other)
  Sender: FDA-Public Use
  Company Number: None

PATIENT
  Age: 79 Year
  Sex: Male
  Weight: 91.8 kg

DRUGS (11)
  1. XANAX [Concomitant]
     Active Substance: ALPRAZOLAM
  2. XARELTO [Concomitant]
     Active Substance: RIVAROXABAN
  3. ALLOPURINOL. [Concomitant]
     Active Substance: ALLOPURINOL
  4. AREDDS2 [Concomitant]
  5. CONCENTRATOR [Concomitant]
  6. CONDROTIIN [Concomitant]
  7. ATENOLOL. [Suspect]
     Active Substance: ATENOLOL
     Indication: HYPERTENSION
     Dosage: ?          QUANTITY:1 TABLET(S);?
     Route: 048
  8. O2 [Concomitant]
     Active Substance: OXYGEN
  9. D [Concomitant]
  10. MILK WEED [Concomitant]
  11. GLUCOSOMINE [Concomitant]

REACTIONS (7)
  - Anxiety [None]
  - Irritable bowel syndrome [None]
  - Hypertonic bladder [None]
  - Mental disorder [None]
  - Vision blurred [None]
  - Diarrhoea [None]
  - Toothache [None]

NARRATIVE: CASE EVENT DATE: 20210915
